FAERS Safety Report 15215661 (Version 1)
Quarter: 2018Q3

REPORT INFORMATION
  Report Type: Spontaneous
  Country: US (occurrence: US)
  Receive Date: 20180703
  Receipt Date: 20180703
  Transmission Date: 20181010
  Serious: Yes (Other)
  Sender: FDA-Public Use
  Company Number: None

PATIENT
  Age: 90 Year
  Sex: Male
  Weight: 81.45 kg

DRUGS (15)
  1. MAGNESIUM [Concomitant]
     Active Substance: MAGNESIUM
  2. BASAGLAR [Concomitant]
     Active Substance: INSULIN GLARGINE
  3. MIRALAX [Concomitant]
     Active Substance: POLYETHYLENE GLYCOL 3350
  4. EXCEDRIN [Concomitant]
     Active Substance: ACETAMINOPHEN\ASPIRIN\CAFFEINE
  5. PREDNISONE. [Concomitant]
     Active Substance: PREDNISONE
  6. TAMSULOSIN [Concomitant]
     Active Substance: TAMSULOSIN
  7. ZINC. [Concomitant]
     Active Substance: ZINC
  8. ALEVE [Concomitant]
     Active Substance: NAPROXEN SODIUM
  9. ZYTIGA [Suspect]
     Active Substance: ABIRATERONE ACETATE
     Indication: PROSTATE CANCER
     Route: 048
     Dates: start: 20180601
  10. CALCIUM [Concomitant]
     Active Substance: CALCIUM
  11. LISINOPRIL. [Concomitant]
     Active Substance: LISINOPRIL
  12. GABAPENTIN. [Concomitant]
     Active Substance: GABAPENTIN
  13. HUMALOG [Concomitant]
     Active Substance: INSULIN LISPRO
  14. WARFARIN [Concomitant]
     Active Substance: WARFARIN
  15. MECLIZINE [Concomitant]
     Active Substance: MECLIZINE HYDROCHLORIDE

REACTIONS (2)
  - Hypotension [None]
  - Hypoglycaemia [None]
